FAERS Safety Report 16744441 (Version 1)
Quarter: 2019Q3

REPORT INFORMATION
  Report Type: Spontaneous
  Country: GB (occurrence: GB)
  Receive Date: 20190827
  Receipt Date: 20190827
  Transmission Date: 20191005
  Serious: Yes (Other)
  Sender: FDA-Public Use
  Company Number: GB-SAMSUNG BIOEPIS-SB-2019-24058

PATIENT
  Age: 51 Year
  Sex: Male

DRUGS (1)
  1. IMRALDI [Suspect]
     Active Substance: ADALIMUMAB
     Indication: PRODUCT USED FOR UNKNOWN INDICATION
     Dosage: UNKNOWN
     Route: 058

REACTIONS (6)
  - Cerebrovascular accident [Unknown]
  - Atrial septal defect [Unknown]
  - Amnesia [Unknown]
  - Injection site bruising [Unknown]
  - Embolism [Unknown]
  - Product design issue [Unknown]
